FAERS Safety Report 10088842 (Version 6)
Quarter: 2014Q2

REPORT INFORMATION
  Report Type: Spontaneous
  Country: GB (occurrence: GB)
  Receive Date: 20140421
  Receipt Date: 20140606
  Transmission Date: 20141212
  Serious: Yes (Hospitalization)
  Sender: FDA-Public Use
  Company Number: GB-ACCORD-022985

PATIENT
  Age: 4 Year
  Sex: Male

DRUGS (9)
  1. ACCORD LEVETIRACETAM [Suspect]
     Indication: PRODUCT USED FOR UNKNOWN INDICATION
     Dosage: 500 MG TABLET, 1000 MG DAILY
     Route: 048
  2. ACCORD METOPROLOL [Suspect]
     Indication: PRODUCT USED FOR UNKNOWN INDICATION
     Dosage: 25 MILLIGRAM DAILY; 50MG TABLETS
     Route: 048
  3. EPILIM [Suspect]
     Indication: PRODUCT USED FOR UNKNOWN INDICATION
     Dosage: 100 MILLIGRAM DAILY; 100MG TABLETS
     Route: 048
  4. BRISTOL CAPTOPRIL [Suspect]
     Indication: PRODUCT USED FOR UNKNOWN INDICATION
     Dosage: 45 MILLIGRAM DAILY; 25MG TABLETS
     Route: 048
  5. FLYNN PHARMA PHENYTOIN [Suspect]
     Indication: PRODUCT USED FOR UNKNOWN INDICATION
     Dosage: 150 MILLIGRAM DAILY; 50MG CAPSULE
     Route: 048
  6. TEVA BUMETANIDE [Suspect]
     Indication: PRODUCT USED FOR UNKNOWN INDICATION
     Dosage: 1500 MICROGRAM DAILY; 1MG TABLETS
     Route: 048
  7. BACLOFEN MYLAN [Suspect]
     Indication: PRODUCT USED FOR UNKNOWN INDICATION
     Dosage: 24 MILLIGRAM DAILY; 10MG TABLETS
     Route: 048
  8. ALMUS SPIRONOLACTONE [Suspect]
     Indication: PRODUCT USED FOR UNKNOWN INDICATION
     Dosage: 30 MILLIGRAM DAILY; 25MG TABLETS
     Route: 048
  9. TEVA DIAZEPAM [Suspect]
     Indication: PRODUCT USED FOR UNKNOWN INDICATION
     Dosage: 3 MILLIGRAM DAILY; 2MG TABLETS
     Route: 048

REACTIONS (3)
  - Reaction to drug excipients [Unknown]
  - Drug administered to patient of inappropriate age [Unknown]
  - Blood ketone body increased [Unknown]
